FAERS Safety Report 9612786 (Version 3)
Quarter: 2015Q1

REPORT INFORMATION
  Report Type: Spontaneous
  Country: GB (occurrence: GB)
  Receive Date: 20131010
  Receipt Date: 20150303
  Transmission Date: 20150721
  Serious: Yes (Life-Threatening, Hospitalization, Other)
  Sender: FDA-Public Use
  Company Number: GB-TEVA-436374ISR

PATIENT
  Age: 37 Year
  Sex: Male

DRUGS (12)
  1. DIAZEPAM. [Suspect]
     Active Substance: DIAZEPAM
     Indication: CATATONIA
     Route: 048
     Dates: start: 20130205, end: 20130208
  2. LORAZEPAM. [Concomitant]
     Active Substance: LORAZEPAM
     Indication: PRODUCT USED FOR UNKNOWN INDICATION
     Dosage: ON UNSPECIFIED DATE THE DOSE WAS REDUCED.
  3. VITAMIN B COMPOUND [Concomitant]
     Indication: WERNICKE^S ENCEPHALOPATHY
     Route: 048
     Dates: start: 20130109, end: 20130206
  4. THIAMINE [Concomitant]
     Active Substance: THIAMINE
     Indication: WERNICKE^S ENCEPHALOPATHY
     Route: 048
     Dates: start: 20130109, end: 20130206
  5. DIAZEPAM. [Suspect]
     Active Substance: DIAZEPAM
     Dosage: 5 MG, UNK
     Route: 048
  6. CLOZARIL [Suspect]
     Active Substance: CLOZAPINE
     Route: 048
     Dates: start: 20130227
  7. CLOZARIL [Suspect]
     Active Substance: CLOZAPINE
     Route: 048
  8. LANSOPRAZOLE. [Concomitant]
     Active Substance: LANSOPRAZOLE
     Indication: DYSPEPSIA
     Dosage: 30 MG, UNK
     Route: 048
     Dates: start: 20030109
  9. CLOZARIL [Suspect]
     Active Substance: CLOZAPINE
     Indication: SCHIZOPHRENIA
     Route: 048
     Dates: start: 20010701
  10. LORAZEPAM. [Concomitant]
     Active Substance: LORAZEPAM
     Route: 065
  11. CLOZARIL [Suspect]
     Active Substance: CLOZAPINE
     Route: 048
     Dates: start: 20130122, end: 20130208
  12. FRESUBIN, NUTRITIONAL SUPPLEMENT [Concomitant]
     Indication: PRODUCT USED FOR UNKNOWN INDICATION
     Dosage: 300 ML, UNK
     Route: 048
     Dates: start: 20130201, end: 20130206

REACTIONS (12)
  - Oculocephalogyric reflex absent [Unknown]
  - Miosis [Unknown]
  - Neuroleptic malignant syndrome [Recovered/Resolved]
  - Respiratory depression [Recovered/Resolved]
  - Catatonia [Recovered/Resolved]
  - Coma [Recovering/Resolving]
  - Neutrophil count decreased [Recovered/Resolved]
  - Differential white blood cell count abnormal [Unknown]
  - White blood cell count decreased [Recovered/Resolved]
  - Mental impairment [Unknown]
  - Platelet count decreased [Recovered/Resolved]
  - Blood creatine phosphokinase increased [Unknown]

NARRATIVE: CASE EVENT DATE: 20130103
